FAERS Safety Report 23231581 (Version 1)
Quarter: 2023Q4

REPORT INFORMATION
  Report Type: Spontaneous
  Country: US (occurrence: US)
  Receive Date: 20231127
  Receipt Date: 20231127
  Transmission Date: 20240110
  Serious: Yes (Hospitalization)
  Sender: FDA-Public Use
  Company Number: US-UPSHER-SMITH LABORATORIES, LLC-2023USL00951

PATIENT
  Age: 57 Year
  Sex: Male

DRUGS (3)
  1. TESTOSTERONE [Suspect]
     Active Substance: TESTOSTERONE
     Dosage: UNK
     Route: 030
  2. TESTOSTERONE [Suspect]
     Active Substance: TESTOSTERONE
     Dosage: UNK
     Route: 048
  3. TESTOSTERONE [Suspect]
     Active Substance: TESTOSTERONE
     Dosage: 500 MG, 1X/WEEK
     Route: 030

REACTIONS (2)
  - Adrenal haemorrhage [Unknown]
  - Venous thrombosis [Unknown]
